FAERS Safety Report 9192695 (Version 1)
Quarter: 2013Q1

REPORT INFORMATION
  Report Type: Spontaneous
  Country: US (occurrence: None)
  Receive Date: 20120703
  Receipt Date: 20120703
  Transmission Date: 20140127
  Serious: Yes (Hospitalization)
  Sender: FDA-Public Use
  Company Number: PHEH2012US010782

PATIENT
  Age: 38 Year
  Sex: Male

DRUGS (1)
  1. GILENYA (FTY)CAPSULE,0.5MG [Suspect]
     Indication: MULTIPLE SCLEROSIS
     Route: 048
     Dates: start: 20120511

REACTIONS (4)
  - Multiple sclerosis relapse [None]
  - Fatigue [None]
  - Gait disturbance [None]
  - Somnolence [None]
